FAERS Safety Report 18924731 (Version 1)
Quarter: 2021Q1

REPORT INFORMATION
  Report Type: Spontaneous
  Country: US (occurrence: US)
  Receive Date: 20210222
  Receipt Date: 20210222
  Transmission Date: 20210420
  Serious: No
  Sender: FDA-Public Use
  Company Number: US-PERRIGO-20US012969

PATIENT
  Age: 63 Year
  Sex: Male
  Weight: 102.04 kg

DRUGS (6)
  1. TESTOSTERONE CYPIONATE. [Suspect]
     Active Substance: TESTOSTERONE CYPIONATE
     Dosage: 50 MG, TWICE WEEKLY
     Route: 058
     Dates: start: 20190814, end: 20191119
  2. TESTOSTERONE CYPIONATE. [Suspect]
     Active Substance: TESTOSTERONE CYPIONATE
     Dosage: 60 MG, TWICE WEEKLY
     Route: 058
     Dates: start: 20200605, end: 202006
  3. TESTOSTERONE CYPIONATE. [Suspect]
     Active Substance: TESTOSTERONE CYPIONATE
     Dosage: 50 MG, TWICE WEEKLY
     Route: 030
     Dates: start: 202006, end: 20200905
  4. TESTOSTERONE CYPIONATE. [Suspect]
     Active Substance: TESTOSTERONE CYPIONATE
     Indication: BLOOD TESTOSTERONE DECREASED
     Dosage: 200 MG, WEEKLY
     Route: 030
     Dates: start: 2019, end: 201908
  5. LOSARTAN. [Concomitant]
     Active Substance: LOSARTAN
     Indication: HYPERTENSION
     Dosage: 0.25 MG, QD
     Route: 048
     Dates: start: 2020
  6. TESTOSTERONE CYPIONATE. [Suspect]
     Active Substance: TESTOSTERONE CYPIONATE
     Dosage: 50 MG, TWICE WEEKLY
     Route: 058
     Dates: start: 20200330, end: 202006

REACTIONS (4)
  - Incorrect route of product administration [Recovered/Resolved]
  - Injection site pain [Recovered/Resolved]
  - Blood testosterone increased [Recovered/Resolved]
  - Inappropriate schedule of product administration [Recovered/Resolved]

NARRATIVE: CASE EVENT DATE: 2019
